FAERS Safety Report 6993521-9 (Version None)
Quarter: 2010Q3

REPORT INFORMATION
  Report Type: 
  Country: None (occurrence: None)
  Receive Date: 20100917
  Receipt Date: 20100709
  Transmission Date: 20110219
  Serious: No
  Sender: FDA-Public Use
  Company Number: US-ASTRAZENECA-2010SE32189

PATIENT
  Age: 56 Year
  Sex: Female
  Weight: 79.4 kg

DRUGS (1)
  1. SEROQUEL [Suspect]
     Indication: DEPRESSION
     Route: 048
     Dates: start: 20100201

REACTIONS (3)
  - MIGRAINE [None]
  - MUSCLE TWITCHING [None]
  - SINUSITIS [None]
